FAERS Safety Report 21293151 (Version 1)
Quarter: 2022Q3

REPORT INFORMATION
  Report Type: Other
  Country: None (occurrence: US)
  Receive Date: 20220905
  Receipt Date: 20220905
  Transmission Date: 20221026
  Serious: Yes (Other)
  Sender: FDA-Public Use
  Company Number: US-Ajanta Pharma USA Inc.-2132555

PATIENT
  Age: 60 Year
  Sex: Female

DRUGS (1)
  1. TOFACITINIB CITRATE [Suspect]
     Active Substance: TOFACITINIB CITRATE
     Indication: Rheumatoid arthritis
     Dates: start: 201907

REACTIONS (1)
  - Neuroendocrine carcinoma of the skin [Recovered/Resolved]
